FAERS Safety Report 24708418 (Version 2)
Quarter: 2025Q1

REPORT INFORMATION
  Report Type: Spontaneous
  Country: US (occurrence: US)
  Receive Date: 20241207
  Receipt Date: 20250204
  Transmission Date: 20250408
  Serious: No
  Sender: Kenvue
  Company Number: US-KENVUE-20241102739

PATIENT
  Sex: Female

DRUGS (1)
  1. MENS ROGAINE EXTRA STRENGTH [Suspect]
     Active Substance: MINOXIDIL
     Indication: Alopecia
     Dosage: 1 DROP A PER USE TWICE A DAY
     Route: 061
     Dates: start: 20241101

REACTIONS (6)
  - Alopecia [Recovering/Resolving]
  - Incorrect dose administered [Unknown]
  - Poor quality product administered [Unknown]
  - Suspected counterfeit product [Unknown]
  - Product odour abnormal [Unknown]
  - Product colour issue [Unknown]

NARRATIVE: CASE EVENT DATE: 20241101
